FAERS Safety Report 5036771-3 (Version None)
Quarter: 2006Q2

REPORT INFORMATION
  Report Type: 
  Country: None (occurrence: None)
  Receive Date: 20060628
  Receipt Date: 20060621
  Transmission Date: 20061013
  Serious: Yes (Life-Threatening, Hospitalization)
  Sender: FDA-Public Use
  Company Number: GB-JNJFOC-20050606942

PATIENT
  Sex: Female

DRUGS (4)
  1. RISPERDAL [Suspect]
  2. RISPERDAL [Suspect]
     Indication: BIPOLAR DISORDER
  3. VALPROATE SODIUM [Concomitant]
     Indication: BIPOLAR DISORDER
  4. IBUPROFEN [Concomitant]
     Indication: OSTEOARTHRITIS
     Dosage: 800MG MARNE 1600MG NOCTE

REACTIONS (6)
  - CARDIAC FAILURE [None]
  - GRAND MAL CONVULSION [None]
  - HYPONATRAEMIA [None]
  - OEDEMA PERIPHERAL [None]
  - POLYDIPSIA [None]
  - URINARY INCONTINENCE [None]
